FAERS Safety Report 4735681-6 (Version None)
Quarter: 2005Q3

REPORT INFORMATION
  Report Type: 
  Country: None (occurrence: None)
  Receive Date: 20050803
  Receipt Date: 20050714
  Transmission Date: 20060218
  Serious: Yes (Hospitalization, Other)
  Sender: FDA-Public Use
  Company Number: USA0507102862

PATIENT
  Age: 66 Year
  Sex: Male
  Weight: 105 kg

DRUGS (2)
  1. HUMULIN N [Suspect]
     Dosage: 50 U/2 DAY
     Dates: start: 19830401
  2. HUMULIN R [Suspect]
     Dosage: 32 U DAY
     Dates: start: 19830401

REACTIONS (13)
  - BLOOD GLUCOSE INCREASED [None]
  - BRONCHITIS [None]
  - CATARACT [None]
  - CHOLECYSTITIS INFECTIVE [None]
  - CORNEAL TRANSPLANT [None]
  - CORONARY ARTERY OCCLUSION [None]
  - FEELING ABNORMAL [None]
  - NEPHROLITHIASIS [None]
  - PHARMACEUTICAL PRODUCT COMPLAINT [None]
  - PULMONARY OEDEMA [None]
  - VISION BLURRED [None]
  - VISUAL ACUITY REDUCED [None]
  - WEIGHT DECREASED [None]
